FAERS Safety Report 11665812 (Version 2)
Quarter: 2015Q4

REPORT INFORMATION
  Report Type: Spontaneous
  Country: PE (occurrence: PE)
  Receive Date: 20151027
  Receipt Date: 20151124
  Transmission Date: 20160304
  Serious: Yes (Other)
  Sender: FDA-Public Use
  Company Number: PE-PFIZER INC-2015356103

PATIENT
  Age: 62 Year
  Sex: Female

DRUGS (2)
  1. CELEBREX [Suspect]
     Active Substance: CELECOXIB
     Dosage: 2 TABLETS DAILY
  2. CELEBREX [Suspect]
     Active Substance: CELECOXIB
     Dosage: 1 TABLET DAILY

REACTIONS (2)
  - Hepatitis [Unknown]
  - Hernia [Unknown]
